FAERS Safety Report 20777119 (Version 1)
Quarter: 2022Q2

REPORT INFORMATION
  Report Type: Spontaneous
  Country: US (occurrence: US)
  Receive Date: 20220503
  Receipt Date: 20220503
  Transmission Date: 20220721
  Serious: Yes (Other)
  Sender: FDA-Public Use
  Company Number: US-drreddys-SPO/USA/22/0149422

PATIENT
  Age: 16 Year

DRUGS (3)
  1. ACCUTANE [Suspect]
     Active Substance: ISOTRETINOIN
     Indication: Product used for unknown indication
     Dosage: RMA ISSUE DATE: 14 MARCH 2022 10:31:16 AM
  2. ABSORICA [Suspect]
     Active Substance: ISOTRETINOIN
     Indication: Product used for unknown indication
     Dosage: RMA ISSUE DATE: 16 JULY 2019 12:00:00 AM, 15 AUGUST 2019 12:00:00 AM AND 11 FEBRUARY 2022 12:47:24 P
  3. MYORISAN [Suspect]
     Active Substance: ISOTRETINOIN
     Indication: Product used for unknown indication
     Dosage: RMA ISSUE DATE: 9 APRIL 2019 12:00:00 AM, 9 MAY 2019 12:00:00 AM AND 12 JUNE 2019 12:00:00 AM

REACTIONS (1)
  - Mood altered [Unknown]
